FAERS Safety Report 4291496-7 (Version None)
Quarter: 2004Q1

REPORT INFORMATION
  Report Type: 
  Country: None (occurrence: None)
  Receive Date: 20040211
  Receipt Date: 20030430
  Transmission Date: 20041129
  Serious: No
  Sender: FDA-Public Use
  Company Number: US-BRISTOL-MYERS SQUIBB COMPANY-12260279

PATIENT
  Age: 68 Week
  Sex: Female
  Weight: 59 kg

DRUGS (5)
  1. CEFZIL [Suspect]
     Indication: URINARY TRACT INFECTION
     Dosage: 250MG/5ML TWICE DAILY TAKEN 01-APR-03 TO 10-APR-03 AND RESTARTED 28-APR-03  5ML = 1 TEASPOON
     Route: 048
     Dates: start: 20030401
  2. MYLERAN [Concomitant]
  3. TYLENOL (CAPLET) [Concomitant]
  4. FIORICET [Concomitant]
  5. BUSULFAN [Concomitant]

REACTIONS (1)
  - VISION BLURRED [None]
